FAERS Safety Report 10062026 (Version 1)
Quarter: 2014Q2

REPORT INFORMATION
  Report Type: Spontaneous
  Country: US (occurrence: None)
  Receive Date: 20140403
  Receipt Date: 20140403
  Transmission Date: 20141212
  Serious: Yes (Hospitalization, Disabling, Other)
  Sender: FDA-Public Use
  Company Number: 2728_SP

PATIENT
  Age: 64 Year
  Sex: Female
  Weight: 89 kg

DRUGS (7)
  1. ZOLEDRONIC ACID [Suspect]
     Indication: BREAST CANCER
     Route: 042
     Dates: start: 20140321, end: 20140321
  2. FEMARA [Concomitant]
  3. RESTORIL [Concomitant]
  4. ZOCOR [Concomitant]
  5. PEPCID [Concomitant]
  6. ASPIRIN 81 MG [Concomitant]
  7. TYLENOL PRN [Concomitant]

REACTIONS (1)
  - Cerebrovascular accident [None]
